FAERS Safety Report 7957212-X (Version None)
Quarter: 2011Q4

REPORT INFORMATION
  Report Type: 
  Country: None (occurrence: None)
  Receive Date: 20111205
  Receipt Date: 20111110
  Transmission Date: 20120403
  Serious: No
  Sender: FDA-Public Use
  Company Number: US-ROXANE LABORATORIES, INC.-2011-RO-01633RO

PATIENT

DRUGS (1)
  1. BUPRENORPHINE HCL [Suspect]
     Indication: DRUG DETOXIFICATION
     Route: 060

REACTIONS (3)
  - DRUG INEFFECTIVE [None]
  - MALAISE [None]
  - VOMITING [None]
